FAERS Safety Report 7759944-5 (Version None)
Quarter: 2011Q3

REPORT INFORMATION
  Report Type: 
  Country: None (occurrence: None)
  Receive Date: 20110919
  Receipt Date: 20110411
  Transmission Date: 20111222
  Serious: No
  Sender: FDA-Public Use
  Company Number: US-BAYER-2011-032855

PATIENT
  Age: 22 Year
  Sex: Female

DRUGS (1)
  1. MIRENA [Suspect]
     Indication: CONTRACEPTION
     Dosage: 20 MCG/24HR, UNK
     Route: 015
     Dates: start: 20101012

REACTIONS (8)
  - DYSPAREUNIA [None]
  - PAIN [None]
  - DEVICE DISLOCATION [None]
  - VIRAL INFECTION [None]
  - FUNGAL INFECTION [None]
  - ANXIETY [None]
  - VAGINAL HAEMORRHAGE [None]
  - PENILE PAIN [None]
